FAERS Safety Report 8314804-6 (Version None)
Quarter: 2012Q2

REPORT INFORMATION
  Report Type: 
  Country: None (occurrence: None)
  Receive Date: 20120426
  Receipt Date: 20120418
  Transmission Date: 20120825
  Serious: Yes (Other)
  Sender: FDA-Public Use
  Company Number: US-PFIZER INC-2012097590

PATIENT
  Age: 34 Year
  Sex: Male

DRUGS (1)
  1. BENEFIX [Suspect]
     Indication: HAEMOPHILIA B WITHOUT INHIBITORS
     Dosage: UNK
     Dates: start: 19960101

REACTIONS (1)
  - DRUG INEFFECTIVE [None]
